FAERS Safety Report 5255514-1 (Version None)
Quarter: 2007Q1

REPORT INFORMATION
  Report Type: 
  Country: None (occurrence: None)
  Receive Date: 20070228
  Receipt Date: 20070219
  Transmission Date: 20070707
  Serious: Yes (Other)
  Sender: FDA-Public Use
  Company Number: GXKR2007CA01817

PATIENT
  Sex: 0

DRUGS (1)
  1. RANITIDINE [Suspect]
     Indication: DYSPEPSIA
     Dosage: 150 MG, BID

REACTIONS (1)
  - PROSTATE CANCER [None]
